FAERS Safety Report 6664745-5 (Version None)
Quarter: 2010Q1

REPORT INFORMATION
  Report Type: 
  Country: None (occurrence: None)
  Receive Date: 20100330
  Receipt Date: 20100319
  Transmission Date: 20100710
  Serious: Yes (Hospitalization)
  Sender: FDA-Public Use
  Company Number: OMPQ-NO-1003L-0152

PATIENT
  Age: 76 Year
  Sex: Male

DRUGS (7)
  1. OMNIPAQUE 350 [Suspect]
     Indication: BENIGN PANCREATIC NEOPLASM
     Dosage: NR, SINGLE DOSE, I.V.
     Route: 042
     Dates: start: 20081118, end: 20081118
  2. VALSARTAN [Concomitant]
  3. FAMOTIDINE (GASTERD) [Concomitant]
  4. CAFFEINE [Concomitant]
  5. SALICYLAMIDE [Concomitant]
  6. PARACETAMOL [Concomitant]
  7. PROMETHAZINE METHYLENE DISALICYLATE [Concomitant]

REACTIONS (6)
  - ACUTE GENERALISED EXANTHEMATOUS PUSTULOSIS [None]
  - GENERALISED ERYTHEMA [None]
  - NASOPHARYNGITIS [None]
  - PYREXIA [None]
  - SKIN TEST POSITIVE [None]
  - TYPE IV HYPERSENSITIVITY REACTION [None]
